FAERS Safety Report 18524501 (Version 2)
Quarter: 2021Q1

REPORT INFORMATION
  Report Type: Report from Study
  Country: None (occurrence: US)
  Receive Date: 20201120
  Receipt Date: 20210126
  Transmission Date: 20210419
  Serious: Yes (Death)
  Sender: FDA-Public Use
  Company Number: US-ABBVIE-20K-163-3657534-00

PATIENT
  Age: 89 Year
  Sex: Female
  Weight: 46.76 kg

DRUGS (3)
  1. MYRBETRIQ [Concomitant]
     Active Substance: MIRABEGRON
     Indication: BLADDER DISORDER
  2. AMLODIPINE [Concomitant]
     Active Substance: AMLODIPINE BESYLATE
     Indication: HYPERTENSION
  3. SYNTHROID [Suspect]
     Active Substance: LEVOTHYROXINE SODIUM
     Indication: THYROID DISORDER
     Dosage: 1 TABLET DAILY AND 2 TABLETS ON SUNDAY
     Route: 048
     Dates: start: 2017

REACTIONS (2)
  - Inappropriate schedule of product administration [Unknown]
  - Renal failure [Fatal]

NARRATIVE: CASE EVENT DATE: 20201017
